FAERS Safety Report 14346721 (Version 1)
Quarter: 2018Q1

REPORT INFORMATION
  Report Type: Spontaneous
  Country: US (occurrence: US)
  Receive Date: 20180103
  Receipt Date: 20180103
  Transmission Date: 20180509
  Serious: No
  Sender: FDA-Public Use
  Company Number: US-TEVA-2017-US-839865

PATIENT
  Sex: Female

DRUGS (2)
  1. PREGABALIN. [Concomitant]
     Active Substance: PREGABALIN
     Dosage: TAKE 1TID FOR 5D, 2 TID FOR 1WK,3 TID FOR 1WK, THEN 4TID, TITRATED AS TOLERATED DEPENDING ON BENEFIT
     Route: 048
  2. NICOTINIC ACID [Suspect]
     Active Substance: NIACIN

REACTIONS (1)
  - Drug hypersensitivity [Unknown]
